FAERS Safety Report 8987737 (Version 1)
Quarter: 2012Q4

REPORT INFORMATION
  Report Type: 
  Country: US (occurrence: US)
  Receive Date: 20121227
  Receipt Date: 20121227
  Transmission Date: 20130627
  Serious: Yes (Other)
  Sender: FDA-Public Use
  Company Number: PHHY2012US119465

PATIENT
  Age: 7 Year
  Sex: Female

DRUGS (4)
  1. METHOTREXATE [Suspect]
     Indication: ACUTE LYMPHOCYTIC LEUKAEMIA
  2. VINCRISTINE [Suspect]
     Indication: ACUTE LYMPHOCYTIC LEUKAEMIA
  3. LEUCOVORIN CALCIUM [Suspect]
     Indication: ACUTE LYMPHOCYTIC LEUKAEMIA
  4. DEXAMETHASONE [Suspect]
     Indication: ACUTE LYMPHOCYTIC LEUKAEMIA

REACTIONS (6)
  - Osteonecrosis [Recovered/Resolved]
  - Joint effusion [Recovered/Resolved]
  - Fall [Unknown]
  - Joint swelling [Recovered/Resolved]
  - Arthralgia [Recovered/Resolved]
  - Knee deformity [Recovered/Resolved]
